FAERS Safety Report 23203479 (Version 1)
Quarter: 2023Q4

REPORT INFORMATION
  Report Type: Spontaneous
  Country: US (occurrence: US)
  Receive Date: 20231120
  Receipt Date: 20231120
  Transmission Date: 20240109
  Serious: No
  Sender: FDA-Public Use
  Company Number: US-drreddys-LIT/USA/23/0179695

PATIENT
  Age: 42 Year
  Sex: Female

DRUGS (6)
  1. DOXYCYCLINE [Suspect]
     Active Substance: DOXYCYCLINE
     Indication: Alopecia scarring
     Route: 048
  2. DOXYCYCLINE [Suspect]
     Active Substance: DOXYCYCLINE
     Dosage: HIGHER DOSE
     Route: 048
  3. MINOXIDIL [Suspect]
     Active Substance: MINOXIDIL
     Indication: Alopecia scarring
  4. HALCINONIDE [Suspect]
     Active Substance: HALCINONIDE
     Indication: Alopecia scarring
  5. TRIAMCINOLONE [Suspect]
     Active Substance: TRIAMCINOLONE
     Indication: Alopecia scarring
  6. CORTISONE [Suspect]
     Active Substance: CORTISONE
     Indication: Alopecia scarring
     Route: 026

REACTIONS (5)
  - Gastrointestinal disorder [Unknown]
  - Alopecia scarring [Unknown]
  - Condition aggravated [Unknown]
  - Disease recurrence [Unknown]
  - Product use in unapproved indication [Unknown]
